FAERS Safety Report 9909973 (Version 1)
Quarter: 2014Q1

REPORT INFORMATION
  Report Type: Report from Study
  Country: US (occurrence: US)
  Receive Date: 20140219
  Receipt Date: 20140219
  Transmission Date: 20141002
  Serious: Yes (Hospitalization)
  Sender: FDA-Public Use
  Company Number: US-ABBVIE-14P-163-1200213-00

PATIENT
  Age: 84 Year
  Sex: Male
  Weight: 92.62 kg

DRUGS (19)
  1. HUMIRA [Suspect]
     Indication: RHEUMATOID ARTHRITIS
     Route: 058
     Dates: start: 201008, end: 20140113
  2. METHOTREXATE [Concomitant]
     Indication: RHEUMATOID ARTHRITIS
  3. TIMOLOL [Concomitant]
     Indication: GLAUCOMA
     Dosage: EYE DROPS
  4. BRIMONIDINE [Concomitant]
     Indication: GLAUCOMA
     Dosage: EYE DROPS
  5. LATANOPROST [Concomitant]
     Indication: GLAUCOMA
     Dosage: EYE DROPS
  6. MISOPROSTOL [Concomitant]
     Indication: RHEUMATOID ARTHRITIS
  7. PREDNISONE [Concomitant]
     Indication: RHEUMATOID ARTHRITIS
     Dosage: PRN
  8. NABUMETONE [Concomitant]
     Indication: RHEUMATOID ARTHRITIS
  9. SIMVASTATIN [Concomitant]
     Indication: BLOOD CHOLESTEROL INCREASED
  10. GABAPENTIN [Concomitant]
     Indication: NEUROPATHY PERIPHERAL
  11. LEVOTHYROXINE [Concomitant]
     Indication: HYPOTHYROIDISM
  12. OMEPRAZOLE [Concomitant]
     Indication: GASTROOESOPHAGEAL REFLUX DISEASE
  13. DEVILS CLAW [Concomitant]
     Indication: VITAMIN SUPPLEMENTATION
  14. FOLIC ACID [Concomitant]
     Indication: RHEUMATOID ARTHRITIS
  15. CO Q10 [Concomitant]
     Indication: VITAMIN SUPPLEMENTATION
  16. POTASSIUM MAGNESIUM ASPARTATE [Concomitant]
     Indication: VITAMIN SUPPLEMENTATION
  17. VITAMIN D3 [Concomitant]
     Indication: VITAMIN SUPPLEMENTATION
  18. VITAMIN B12 [Concomitant]
     Indication: VITAMIN SUPPLEMENTATION
  19. MULTIVITAMIN [Concomitant]
     Indication: VITAMIN SUPPLEMENTATION

REACTIONS (3)
  - Exostosis [Recovered/Resolved]
  - Back pain [Recovering/Resolving]
  - Procedural pain [Recovering/Resolving]
